FAERS Safety Report 6196504-4 (Version None)
Quarter: 2009Q2

REPORT INFORMATION
  Report Type: 
  Country: None (occurrence: None)
  Receive Date: 20090518
  Receipt Date: 20090507
  Transmission Date: 20091009
  Serious: Yes (Hospitalization, Other)
  Sender: FDA-Public Use
  Company Number: 60301

PATIENT
  Age: 14 Year
  Sex: Female

DRUGS (1)
  1. ACETYLCYSTEINE SOLUTION [Suspect]

REACTIONS (1)
  - PROTHROMBIN TIME SHORTENED [None]
